FAERS Safety Report 10341197 (Version 9)
Quarter: 2017Q3

REPORT INFORMATION
  Report Type: Report from Study
  Country: BR (occurrence: BR)
  Receive Date: 20140724
  Receipt Date: 20170813
  Transmission Date: 20171127
  Serious: Yes (Other)
  Sender: FDA-Public Use
  Company Number: BR-ROCHE-1439024

PATIENT
  Age: 62 Year
  Sex: Female
  Weight: 67 kg

DRUGS (15)
  1. BACTRIM [Suspect]
     Active Substance: SULFAMETHOXAZOLE\TRIMETHOPRIM
     Indication: PRODUCT USED FOR UNKNOWN INDICATION
     Route: 065
  2. OSTEONUTRI [Concomitant]
     Indication: OSTEOPENIA
     Dosage: 1 TABLET DAILY
     Route: 065
  3. ACTEMRA [Suspect]
     Active Substance: TOCILIZUMAB
     Indication: RHEUMATOID ARTHRITIS
     Dosage: ACTEMRA TREATMENT INFORMATION: BETWEEN 544 MG AND 560 MG PER INFUSION, PER MONTH.
     Route: 042
     Dates: start: 20131101, end: 201406
  4. METHOTREXATE. [Suspect]
     Active Substance: METHOTREXATE
     Indication: RHEUMATOID ARTHRITIS
     Route: 065
  5. DEFLAZACORT [Concomitant]
     Active Substance: DEFLAZACORT
     Indication: RHEUMATOID ARTHRITIS
     Route: 065
     Dates: start: 201402
  6. ACTEMRA [Suspect]
     Active Substance: TOCILIZUMAB
     Route: 042
     Dates: start: 201407
  7. ACTEMRA [Suspect]
     Active Substance: TOCILIZUMAB
     Route: 042
     Dates: start: 20150801
  8. ACTONEL [Concomitant]
     Active Substance: RISEDRONATE SODIUM
     Indication: OSTEOPENIA
  9. ACTEMRA [Suspect]
     Active Substance: TOCILIZUMAB
     Route: 042
     Dates: start: 201501
  10. ACTEMRA [Suspect]
     Active Substance: TOCILIZUMAB
     Route: 042
     Dates: start: 20141117
  11. ACTEMRA [Suspect]
     Active Substance: TOCILIZUMAB
     Route: 042
     Dates: start: 20151101
  12. OSTEONUTRI [Concomitant]
     Indication: OSTEOPOROSIS
     Route: 065
     Dates: start: 2008
  13. FOLIC ACID. [Concomitant]
     Active Substance: FOLIC ACID
     Indication: PLATELET DISORDER
     Dosage: DAILY
     Route: 065
  14. ACTONEL [Concomitant]
     Active Substance: RISEDRONATE SODIUM
     Indication: OSTEOPOROSIS
     Dosage: 1 TABLET
     Route: 065
     Dates: start: 2013
  15. TECNOMET [Concomitant]
     Active Substance: METHOTREXATE

REACTIONS (18)
  - Drug hypersensitivity [Unknown]
  - Limb immobilisation [Not Recovered/Not Resolved]
  - Conjunctivitis bacterial [Recovering/Resolving]
  - Influenza [Not Recovered/Not Resolved]
  - Peripheral swelling [Not Recovered/Not Resolved]
  - Ear infection [Unknown]
  - Arthritis [Not Recovered/Not Resolved]
  - Bedridden [Unknown]
  - Gait disturbance [Not Recovered/Not Resolved]
  - Dermoid cyst [Recovered/Resolved]
  - Immunodeficiency [Unknown]
  - Nausea [Unknown]
  - Arthralgia [Not Recovered/Not Resolved]
  - Vomiting [Unknown]
  - Food poisoning [Recovering/Resolving]
  - Cataract [Recovered/Resolved]
  - Anaphylactic shock [Unknown]
  - Low density lipoprotein increased [Not Recovered/Not Resolved]

NARRATIVE: CASE EVENT DATE: 2017
